FAERS Safety Report 4585341-X (Version None)
Quarter: 2005Q1

REPORT INFORMATION
  Report Type: 
  Country: None (occurrence: None)
  Receive Date: 20050214
  Receipt Date: 20050201
  Transmission Date: 20050727
  Serious: Yes (Hospitalization, Other)
  Sender: FDA-Public Use
  Company Number: 2005024150

PATIENT
  Age: 48 Year
  Sex: Female
  Weight: 63.5036 kg

DRUGS (5)
  1. NEURONTIN [Suspect]
     Indication: NERVE INJURY
     Dosage: 2100 MG
     Dates: start: 20010101, end: 20010801
  2. TOPIRAMATE [Suspect]
     Indication: NERVE INJURY
     Dosage: 50 MG (50 MG, 1 IN 1 D)
     Dates: start: 20040101, end: 20040101
  3. ZOLPIDEM TARTRATE [Concomitant]
  4. TRAMADOL HCL [Concomitant]
  5. PROPACET 100 [Concomitant]

REACTIONS (8)
  - CONTUSION [None]
  - CRYING [None]
  - HEMIPARESIS [None]
  - NEUROPATHY [None]
  - PARAESTHESIA [None]
  - SPEECH DISORDER [None]
  - TREMOR [None]
  - VISUAL DISTURBANCE [None]
